FAERS Safety Report 14882959 (Version 2)
Quarter: 2018Q2

REPORT INFORMATION
  Report Type: Report from Study
  Country: US (occurrence: US)
  Receive Date: 20180511
  Receipt Date: 20180518
  Transmission Date: 20180711
  Serious: Yes (Hospitalization)
  Sender: FDA-Public Use
  Company Number: US-ASTRAZENECA-2018SE62114

PATIENT
  Age: 25435 Day
  Sex: Male
  Weight: 94.4 kg

DRUGS (7)
  1. CREON [Concomitant]
     Active Substance: PANCRELIPASE AMYLASE\PANCRELIPASE LIPASE\PANCRELIPASE PROTEASE
  2. VIAGRA [Concomitant]
     Active Substance: SILDENAFIL CITRATE
  3. AZD6738 [Suspect]
     Active Substance: INVESTIGATIONAL PRODUCT
     Indication: NEOPLASM
     Route: 048
     Dates: start: 20180409, end: 20180415
  4. OXYCODONE [Concomitant]
     Active Substance: OXYCODONE
  5. PRILOSEC [Concomitant]
     Active Substance: OMEPRAZOLE MAGNESIUM
  6. OLAPARIB. [Suspect]
     Active Substance: OLAPARIB
     Indication: NEOPLASM
     Route: 048
     Dates: start: 20180409, end: 20180504
  7. ELIQUIS [Concomitant]
     Active Substance: APIXABAN

REACTIONS (1)
  - Colitis [Recovered/Resolved]

NARRATIVE: CASE EVENT DATE: 20180504
